FAERS Safety Report 7742914-0 (Version None)
Quarter: 2011Q3

REPORT INFORMATION
  Report Type: 
  Country: None (occurrence: None)
  Receive Date: 20110912
  Receipt Date: 20110902
  Transmission Date: 20111222
  Serious: Yes (Hospitalization)
  Sender: FDA-Public Use
  Company Number: JP-ELI_LILLY_AND_COMPANY-JP201109000889

PATIENT
  Age: 87 Year
  Sex: Female

DRUGS (1)
  1. EVISTA [Suspect]
     Indication: OSTEOPOROSIS POSTMENOPAUSAL
     Dosage: 60 MG, TID
     Route: 048
     Dates: start: 20110107, end: 20110701

REACTIONS (2)
  - OVERDOSE [None]
  - CEREBRAL INFARCTION [None]
